FAERS Safety Report 18693327 (Version 1)
Quarter: 2021Q1

REPORT INFORMATION
  Report Type: Spontaneous
  Country: US (occurrence: US)
  Receive Date: 20210104
  Receipt Date: 20210104
  Transmission Date: 20210419
  Serious: Yes (Hospitalization)
  Sender: FDA-Public Use
  Company Number: US-ROCHE-2739344

PATIENT
  Age: 56 Year
  Sex: Female
  Weight: 104.42 kg

DRUGS (2)
  1. FERROUS [IRON] [Concomitant]
     Active Substance: IRON
     Indication: BLOOD IRON DECREASED
     Route: 048
  2. OCREVUS [Suspect]
     Active Substance: OCRELIZUMAB
     Indication: PRIMARY PROGRESSIVE MULTIPLE SCLEROSIS
     Dosage: INITIAL TWO HALF DOSES
     Route: 042
     Dates: start: 20201001

REACTIONS (3)
  - Pneumonia [Recovered/Resolved]
  - COVID-19 [Unknown]
  - Drug hypersensitivity [Not Recovered/Not Resolved]

NARRATIVE: CASE EVENT DATE: 20201001
